FAERS Safety Report 4373116-6 (Version None)
Quarter: 2004Q2

REPORT INFORMATION
  Report Type: 
  Country: None (occurrence: None)
  Receive Date: 20040603
  Receipt Date: 20040518
  Transmission Date: 20050107
  Serious: Yes (Other)
  Sender: FDA-Public Use
  Company Number: US_020282038

PATIENT
  Age: 51 Year
  Sex: Male
  Weight: 102 kg

DRUGS (4)
  1. HUMALOG [Suspect]
     Indication: DIABETES MELLITUS
     Dosage: 10 U/2 DAY
     Dates: start: 19730101
  2. HUMULIN N [Suspect]
     Indication: DIABETES MELLITUS
     Dosage: 50 U DAY
     Dates: start: 19680101
  3. ADALAT [Concomitant]
  4. LOTENSIN [Concomitant]

REACTIONS (4)
  - BLOOD GLUCOSE INCREASED [None]
  - DRUG INEFFECTIVE [None]
  - FOOT AMPUTATION [None]
  - LEG AMPUTATION [None]
